FAERS Safety Report 9182460 (Version 1)
Quarter: 2013Q1

REPORT INFORMATION
  Report Type: Spontaneous
  Country: US (occurrence: US)
  Receive Date: 20130322
  Receipt Date: 20130322
  Transmission Date: 20140127
  Serious: No
  Sender: FDA-Public Use
  Company Number: US-BRISTOL-MYERS SQUIBB COMPANY-16761736

PATIENT
  Age: 69 Year
  Sex: Female
  Weight: 64.85 kg

DRUGS (1)
  1. ERBITUX [Suspect]
     Indication: COLON CANCER
     Route: 042

REACTIONS (9)
  - Dermatitis [Recovering/Resolving]
  - Onycholysis [Recovering/Resolving]
  - Nail infection [Recovered/Resolved]
  - Growth of eyelashes [Recovering/Resolving]
  - Alopecia [Recovering/Resolving]
  - Hair texture abnormal [Recovering/Resolving]
  - Stomatitis [Recovering/Resolving]
  - Oral herpes [Recovering/Resolving]
  - Skin exfoliation [Recovering/Resolving]
